FAERS Safety Report 26147164 (Version 2)
Quarter: 2025Q4

REPORT INFORMATION
  Report Type: Spontaneous
  Country: JP (occurrence: JP)
  Receive Date: 20251211
  Receipt Date: 20251217
  Transmission Date: 20260118
  Serious: Yes (Hospitalization, Other)
  Sender: TAIHO ONCOLOGY INC
  Company Number: JP-TAIHOP-2025-011468

PATIENT
  Age: 65 Year
  Sex: Male

DRUGS (3)
  1. LONSURF [Suspect]
     Active Substance: TIPIRACIL HYDROCHLORIDE\TRIFLURIDINE
     Indication: Colorectal cancer
     Dosage: 120 MG PER DAY ?FORM STRENGTH AND CURRENT CYCLE UNKNOWN.?DAILY DOSE: 120.0 MILLIGRAM(S)
     Route: 048
     Dates: start: 20250306, end: 202508
  2. LONSURF [Suspect]
     Active Substance: TIPIRACIL HYDROCHLORIDE\TRIFLURIDINE
     Dosage: 110 MG PER DAY ?FORM STRENGTH AND CURRENT CYCLE UNKNOWN.?DAILY DOSE: 110.0 MILLIGRAM(S)
     Route: 048
     Dates: start: 202510
  3. LONSURF [Suspect]
     Active Substance: TIPIRACIL HYDROCHLORIDE\TRIFLURIDINE
     Dosage: 90 MG PER DAY ?FORM STRENGTH AND CURRENT CYCLE UNKNOWN.?DAILY DOSE: 90.0 MILLIGRAM(S)
     Route: 048
     Dates: start: 202512

REACTIONS (7)
  - Anaemia [Recovered/Resolved]
  - Neutrophil count decreased [Recovered/Resolved]
  - Platelet count decreased [Recovered/Resolved]
  - Enterostomy [Unknown]
  - Disease progression [Unknown]
  - Enterocutaneous fistula [Recovered/Resolved]
  - Abdominal wall abscess [Recovered/Resolved]

NARRATIVE: CASE EVENT DATE: 20251006
